FAERS Safety Report 17585113 (Version 2)
Quarter: 2020Q2

REPORT INFORMATION
  Report Type: Spontaneous
  Country: US (occurrence: US)
  Receive Date: 20200326
  Receipt Date: 20200408
  Transmission Date: 20200713
  Serious: No
  Sender: FDA-Public Use
  Company Number: US-CELGENEUS-USA-20200307107

PATIENT
  Sex: Female

DRUGS (2)
  1. OTEZLA [Suspect]
     Active Substance: APREMILAST
     Indication: PSORIATIC ARTHROPATHY
     Route: 048
  2. XELJANZ XR [Suspect]
     Active Substance: TOFACITINIB CITRATE
     Indication: PSORIATIC ARTHROPATHY
     Dosage: 11 MILLIGRAM
     Route: 048
     Dates: start: 20190902

REACTIONS (5)
  - Pain in extremity [Unknown]
  - Back pain [Unknown]
  - Therapeutic product effect decreased [Unknown]
  - Psoriatic arthropathy [Unknown]
  - Treatment failure [Unknown]
